FAERS Safety Report 6715874-9 (Version None)
Quarter: 2010Q2

REPORT INFORMATION
  Report Type: 
  Country: None (occurrence: None)
  Receive Date: 20100506
  Receipt Date: 20100506
  Transmission Date: 20101027
  Serious: Yes (Hospitalization)
  Sender: FDA-Public Use
  Company Number: None

PATIENT
  Sex: Female
  Weight: 116.9 kg

DRUGS (4)
  1. BEVACIZUMAB (RHUMAB VEGF) [Suspect]
     Dosage: 1815 MG
     Dates: end: 20100407
  2. CARBOPLATIN [Suspect]
     Dosage: 1410 MG
     Dates: end: 20100407
  3. TAXOL [Suspect]
     Dosage: 450 MG
     Dates: end: 20100407
  4. ASPIRIN [Concomitant]

REACTIONS (13)
  - ABDOMINAL PAIN [None]
  - COAGULOPATHY [None]
  - CONSTIPATION [None]
  - DIARRHOEA [None]
  - DUODENAL ULCER [None]
  - GASTRIC ULCER [None]
  - GASTROINTESTINAL HAEMORRHAGE [None]
  - HYPERCALCAEMIA [None]
  - HYPOCALCAEMIA [None]
  - NAUSEA [None]
  - NEUROPATHY PERIPHERAL [None]
  - PAIN [None]
  - SHOCK HAEMORRHAGIC [None]
